FAERS Safety Report 9941610 (Version 2)
Quarter: 2014Q1

REPORT INFORMATION
  Report Type: Report from Study
  Country: US (occurrence: US)
  Receive Date: 20140303
  Receipt Date: 20140303
  Transmission Date: 20141002
  Serious: No
  Sender: FDA-Public Use
  Company Number: US-ABBVIE-12P-163-1013895-00

PATIENT
  Sex: Male

DRUGS (4)
  1. HUMIRA [Suspect]
     Indication: PSORIASIS
     Route: 058
     Dates: start: 20120909
  2. IBUPROFEN [Concomitant]
     Indication: HEADACHE
  3. PREDNISONE [Concomitant]
     Indication: PRODUCT USED FOR UNKNOWN INDICATION
  4. UNKNOWN SEROTONIN INHIBITOR [Concomitant]
     Indication: HEADACHE
     Dosage: TOOK ONE RECENTLY DID NOT WORK SO NOT TAKEN AGAIN

REACTIONS (1)
  - Cluster headache [Not Recovered/Not Resolved]
